FAERS Safety Report 8663203 (Version 3)
Quarter: 2012Q4

REPORT INFORMATION
  Report Type: 
  Country: DK (occurrence: DK)
  Receive Date: 20120713
  Receipt Date: 20121010
  Transmission Date: 20130627
  Serious: Yes (Death, Other)
  Sender: FDA-Public Use
  Company Number: PHHY2012DK059279

PATIENT
  Age: 44 Year
  Sex: Male
  Weight: 52 kg

DRUGS (10)
  1. TEGRETOL RETARD [Suspect]
     Indication: EPILEPSY
     Dosage: 200 and 400 mg (daily dose 600 mg)
     Route: 048
  2. TEGRETOL RETARD [Suspect]
     Indication: EPILEPSY
     Dosage: 10 mg, QD
  3. TEGRETOL RETARD [Suspect]
     Dosage: 200 and 400 mg (daily dose 600 mg)
  4. VIMPAT [Suspect]
     Indication: EPILEPSY
     Dosage: 200 mg BID
     Route: 048
     Dates: start: 20111013
  5. VIMPAT [Suspect]
     Indication: EPILEPSY
  6. FRISIUM [Suspect]
     Indication: EPILEPSY
     Dosage: 10 mg, QD
     Route: 048
     Dates: start: 20060406
  7. FRISIUM [Suspect]
     Indication: EPILEPSY
     Dosage: 10 mg, UNK
     Route: 048
     Dates: start: 20090406
  8. PAMOL [Concomitant]
     Indication: PAIN
  9. IBUMAX [Concomitant]
     Indication: PAIN
  10. CHLOROPHYLL [Concomitant]
     Indication: BREATH ODOUR

REACTIONS (6)
  - Asphyxia [Fatal]
  - Epilepsy [Fatal]
  - Restlessness [Fatal]
  - Choking [Fatal]
  - Fall [Unknown]
  - Insomnia [Unknown]
